FAERS Safety Report 12845733 (Version 1)
Quarter: 2016Q4

REPORT INFORMATION
  Report Type: Report from Study
  Country: KR (occurrence: KR)
  Receive Date: 20161013
  Receipt Date: 20161013
  Transmission Date: 20170207
  Serious: Yes (Hospitalization, Other)
  Sender: FDA-Public Use
  Company Number: KR-B.I. PHARMACEUTICALS,INC./RIDGEFIELD-2012-CS-00191CS

PATIENT
  Age: 61 Year
  Sex: Male
  Weight: 81.2 kg

DRUGS (6)
  1. AFATINIB [Suspect]
     Active Substance: AFATINIB
     Route: 048
     Dates: start: 20120104, end: 20121212
  2. AFATINIB [Suspect]
     Active Substance: AFATINIB
     Route: 048
     Dates: start: 20111123, end: 20111220
  3. IRESSA [Concomitant]
     Active Substance: GEFITINIB
     Indication: NON-SMALL CELL LUNG CANCER
     Route: 065
     Dates: start: 20100915, end: 20110720
  4. AFATINIB [Suspect]
     Active Substance: AFATINIB
     Route: 048
     Dates: start: 20111221, end: 20120103
  5. AFATINIB [Suspect]
     Active Substance: AFATINIB
     Indication: NON-SMALL CELL LUNG CANCER
     Route: 048
     Dates: start: 20111104, end: 20111122
  6. ALIMTA [Concomitant]
     Active Substance: PEMETREXED DISODIUM
     Indication: NON-SMALL CELL LUNG CANCER
     Route: 065
     Dates: start: 20110727, end: 20110907

REACTIONS (29)
  - Spinal compression fracture [Not Recovered/Not Resolved]
  - Dizziness [Recovered/Resolved]
  - Gastritis [Unknown]
  - Vomiting [Unknown]
  - Asthenia [Unknown]
  - Back pain [Unknown]
  - Musculoskeletal pain [Unknown]
  - Pericardial effusion [Unknown]
  - Nausea [Unknown]
  - Pain [Recovered/Resolved]
  - Epigastric discomfort [Unknown]
  - Myalgia [Unknown]
  - Dizziness [Unknown]
  - Productive cough [Unknown]
  - Pneumonia [Unknown]
  - Diarrhoea [Unknown]
  - Constipation [Recovered/Resolved]
  - Malignant neoplasm progression [Unknown]
  - Flank pain [Unknown]
  - Vertigo [Unknown]
  - Fatigue [Unknown]
  - Musculoskeletal chest pain [Unknown]
  - Pelvic pain [Unknown]
  - Confusional state [Unknown]
  - Pathological fracture [Not Recovered/Not Resolved]
  - Ileus [Unknown]
  - Chest discomfort [Recovered/Resolved]
  - Skin lesion [Unknown]
  - Dyspnoea [Unknown]

NARRATIVE: CASE EVENT DATE: 20111109
